FAERS Safety Report 10794828 (Version 4)
Quarter: 2015Q3

REPORT INFORMATION
  Report Type: Spontaneous
  Country: US (occurrence: US)
  Receive Date: 20150213
  Receipt Date: 20150819
  Transmission Date: 20151125
  Serious: No
  Sender: FDA-Public Use
  Company Number: US-GLAXOSMITHKLINE-US2015GSK020009

PATIENT
  Sex: Female
  Weight: 72.47 kg

DRUGS (9)
  1. PROMACTA [Suspect]
     Active Substance: ELTROMBOPAG OLAMINE
     Dosage: 75 MG, UNK
     Route: 048
  2. PROMACTA [Suspect]
     Active Substance: ELTROMBOPAG OLAMINE
     Dosage: 100 MG, UNK
     Route: 048
     Dates: end: 20141126
  3. RITUXAN [Concomitant]
     Active Substance: RITUXIMAB
     Indication: IMMUNE THROMBOCYTOPENIC PURPURA
     Dosage: UNK
     Dates: start: 20110318, end: 20110408
  4. PROMACTA [Suspect]
     Active Substance: ELTROMBOPAG OLAMINE
     Indication: IMMUNE THROMBOCYTOPENIC PURPURA
     Dosage: 50 MG, U
     Route: 048
     Dates: start: 20141016
  5. TYLENOL ARTHRITIS PAIN [Concomitant]
     Active Substance: ACETAMINOPHEN
  6. NPLATE [Concomitant]
     Active Substance: ROMIPLOSTIM
     Indication: IMMUNE THROMBOCYTOPENIC PURPURA
     Dosage: UNK
     Dates: start: 20110411
  7. TUMS [Concomitant]
     Active Substance: CALCIUM CARBONATE
  8. LISINOPRIL. [Concomitant]
     Active Substance: LISINOPRIL
  9. DECADRON [Concomitant]
     Active Substance: DEXAMETHASONE
     Indication: IMMUNE THROMBOCYTOPENIC PURPURA
     Dosage: UNK
     Dates: start: 20110318, end: 20110408

REACTIONS (11)
  - Skin disorder [Unknown]
  - Platelet count decreased [Recovering/Resolving]
  - Polyuria [Unknown]
  - Malaise [Unknown]
  - Electrocardiogram abnormal [Unknown]
  - Diarrhoea [Unknown]
  - Urinary tract infection [Unknown]
  - Contusion [Unknown]
  - Fatigue [Not Recovered/Not Resolved]
  - Physical examination abnormal [Unknown]
  - Vaginal haemorrhage [Unknown]
